FAERS Safety Report 9557908 (Version 1)
Quarter: 2013Q3

REPORT INFORMATION
  Report Type: Spontaneous
  Country: FR (occurrence: FR)
  Receive Date: 20130926
  Receipt Date: 20130926
  Transmission Date: 20140515
  Serious: Yes (Other)
  Sender: FDA-Public Use
  Company Number: FR-EISAI INC-E3810-06689-SPO-FR

PATIENT
  Age: 44 Year
  Sex: Male

DRUGS (4)
  1. PARIET (RABEPRAZOLE) [Suspect]
     Route: 048
     Dates: start: 20130910
  2. SUBUTEX [Concomitant]
  3. SERESTA [Concomitant]
     Route: 048
  4. VITAMIN B1-B6 [Concomitant]
     Dates: start: 20130905

REACTIONS (2)
  - Face oedema [Recovered/Resolved]
  - Lip oedema [Recovered/Resolved]
